FAERS Safety Report 6691444-6 (Version None)
Quarter: 2010Q2

REPORT INFORMATION
  Report Type: 
  Country: None (occurrence: None)
  Receive Date: 20100414
  Receipt Date: 20090709
  Transmission Date: 20101027
  Serious: Yes (Other)
  Sender: FDA-Public Use
  Company Number: 09-311

PATIENT
  Age: 55 Year
  Sex: Female

DRUGS (10)
  1. ALEVE [Suspect]
     Indication: ARTHRALGIA
     Dosage: 220 MG, DAILY, ORAL
     Route: 048
  2. ALEVE [Suspect]
     Indication: JOINT SWELLING
     Dosage: 220 MG, DAILY, ORAL
     Route: 048
  3. COZAAR [Concomitant]
  4. JOHNSON'S BABY ASPIRIN [Concomitant]
  5. GLUCOSAMINE [Concomitant]
  6. PRESCRIPTION NAPROXEN [Concomitant]
  7. B12 VITAMIN [Concomitant]
  8. CENTRUM CARDIO VITAMIN [Concomitant]
  9. IRON [Concomitant]
  10. FOLIC ACID [Concomitant]

REACTIONS (2)
  - FATIGUE [None]
  - SOMNOLENCE [None]
